FAERS Safety Report 7610680-5 (Version None)
Quarter: 2011Q3

REPORT INFORMATION
  Report Type: 
  Country: None (occurrence: None)
  Receive Date: 20110715
  Receipt Date: 20110713
  Transmission Date: 20111222
  Serious: Yes (Other)
  Sender: FDA-Public Use
  Company Number: US-PFIZER INC-2011158972

PATIENT
  Sex: Female
  Weight: 111 kg

DRUGS (1)
  1. PROTONIX [Suspect]
     Indication: OESOPHAGEAL CARCINOMA
     Dosage: 40 MG, 1X/DAY
     Route: 048
     Dates: start: 19990101

REACTIONS (3)
  - HYPERGLYCAEMIA [None]
  - PROTEIN URINE PRESENT [None]
  - BLOOD URIC ACID INCREASED [None]
